FAERS Safety Report 5711998-3 (Version None)
Quarter: 2008Q2

REPORT INFORMATION
  Report Type: 
  Country: None (occurrence: None)
  Receive Date: 20080416
  Receipt Date: 20080401
  Transmission Date: 20081010
  Serious: Yes (Hospitalization)
  Sender: FDA-Public Use
  Company Number: 2008S1005433

PATIENT
  Age: 80 Year
  Sex: Male

DRUGS (5)
  1. FLUOXETINE [Suspect]
     Indication: DEPRESSION
     Dosage: 20 MG; ORAL
     Route: 048
  2. TRAMADOL HCL [Suspect]
     Indication: MUSCULOSKELETAL PAIN
     Dosage: 100 MG; 3 TIMES A DAY; ORAL
     Route: 048
     Dates: start: 20080310, end: 20080311
  3. BENDROFLUMETHIAZIDE [Concomitant]
  4. PARACETAMOL [Concomitant]
  5. ZOPICLONE [Concomitant]

REACTIONS (4)
  - BALANCE DISORDER [None]
  - DRUG INTERACTION [None]
  - HALLUCINATIONS, MIXED [None]
  - TREMOR [None]
